FAERS Safety Report 17603297 (Version 1)
Quarter: 2020Q1

REPORT INFORMATION
  Report Type: Report from Study
  Country: US (occurrence: US)
  Receive Date: 20200331
  Receipt Date: 20200331
  Transmission Date: 20200409
  Serious: Yes (Hospitalization, Other)
  Sender: FDA-Public Use
  Company Number: US-ROCHE-2046718

PATIENT
  Age: 56 Year
  Sex: Female

DRUGS (28)
  1. LABETALOL [Concomitant]
     Active Substance: LABETALOL\LABETALOL HYDROCHLORIDE
     Route: 065
  2. ELIQUIS [Concomitant]
     Active Substance: APIXABAN
  3. ASPIRIN [ACETYLSALICYLIC ACID] [Concomitant]
     Active Substance: ASPIRIN
  4. OMEGA [OMEPRAZOLE] [Concomitant]
  5. LOSARTAN. [Concomitant]
     Active Substance: LOSARTAN
     Route: 065
  6. NOXAFIL [Concomitant]
     Active Substance: POSACONAZOLE
  7. LACTULOSE. [Concomitant]
     Active Substance: LACTULOSE
  8. AZITHROMYCIN ANHYDROUS. [Concomitant]
     Active Substance: AZITHROMYCIN ANHYDROUS
     Route: 065
  9. LANTUS [Concomitant]
     Active Substance: INSULIN GLARGINE
  10. TACROLIMUS. [Concomitant]
     Active Substance: TACROLIMUS
  11. ALENDRONATE [Concomitant]
     Active Substance: ALENDRONATE SODIUM
  12. CHOLECALCIFEROL [Concomitant]
     Active Substance: CHOLECALCIFEROL
  13. PREDNISONE. [Concomitant]
     Active Substance: PREDNISONE
  14. LEVAQUIN [Concomitant]
     Active Substance: LEVOFLOXACIN
     Route: 065
  15. VALGANCICLOVIR. [Suspect]
     Active Substance: VALGANCICLOVIR
     Route: 048
  16. PANTOPRAZOLE [Concomitant]
     Active Substance: PANTOPRAZOLE
  17. METOPROLOL. [Concomitant]
     Active Substance: METOPROLOL
  18. IMODIUM [Concomitant]
     Active Substance: LOPERAMIDE HYDROCHLORIDE
  19. ALENDRONATE [Concomitant]
     Active Substance: ALENDRONATE SODIUM
  20. CHLORTHALIDONE. [Concomitant]
     Active Substance: CHLORTHALIDONE
  21. POSACONAZOLE [Concomitant]
     Active Substance: POSACONAZOLE
  22. CELLCEPT [Suspect]
     Active Substance: MYCOPHENOLATE MOFETIL\MYCOPHENOLATE MOFETIL HYDROCHLORIDE
     Indication: PRODUCT USED FOR UNKNOWN INDICATION
     Route: 065
  23. LOSARTAN. [Concomitant]
     Active Substance: LOSARTAN
  24. NOXAFIL [Concomitant]
     Active Substance: POSACONAZOLE
  25. ROSUVASTATIN. [Concomitant]
     Active Substance: ROSUVASTATIN
  26. COTRIMOXAZOLE [Concomitant]
     Active Substance: SULFAMETHOXAZOLE\TRIMETHOPRIM
  27. VALGANCICLOVIR. [Suspect]
     Active Substance: VALGANCICLOVIR
     Indication: LUNG TRANSPLANT
     Route: 048
     Dates: start: 20170112
  28. METFORMIN [Concomitant]
     Active Substance: METFORMIN HYDROCHLORIDE
     Route: 065

REACTIONS (17)
  - Cytopenia [Recovered/Resolved]
  - Hypoglycaemia [Recovering/Resolving]
  - Abdominal distension [Unknown]
  - Off label use [Unknown]
  - Ascites [Unknown]
  - Ankle fracture [Recovering/Resolving]
  - Deep vein thrombosis [Recovering/Resolving]
  - Lower limb fracture [Recovering/Resolving]
  - Diarrhoea [Recovered/Resolved]
  - Weight increased [Unknown]
  - Oedema [Unknown]
  - Fall [Unknown]
  - Hypokalaemia [Unknown]
  - Cellulitis [Unknown]
  - Overweight [Unknown]
  - Oedema peripheral [Unknown]
  - Intentional product use issue [Unknown]

NARRATIVE: CASE EVENT DATE: 2018
